FAERS Safety Report 25045462 (Version 2)
Quarter: 2025Q1

REPORT INFORMATION
  Report Type: Spontaneous
  Country: US (occurrence: US)
  Receive Date: 20250306
  Receipt Date: 20250311
  Transmission Date: 20250409
  Serious: Yes (Other)
  Sender: PFIZER
  Company Number: US-MLMSERVICE-20250225-PI427225-00128-2

PATIENT
  Age: 32 Year
  Sex: Male

DRUGS (6)
  1. ADRIAMYCIN [Suspect]
     Active Substance: DOXORUBICIN HYDROCHLORIDE
     Indication: Hodgkin^s disease
  2. BLEOMYCIN SULFATE [Suspect]
     Active Substance: BLEOMYCIN SULFATE
     Indication: Hodgkin^s disease
  3. DACARBAZINE [Suspect]
     Active Substance: DACARBAZINE
     Indication: Hodgkin^s disease
  4. VINBLASTINE [Suspect]
     Active Substance: VINBLASTINE
     Indication: Hodgkin^s disease
  5. VEDOLIZUMAB [Concomitant]
     Active Substance: VEDOLIZUMAB
     Indication: Proctitis ulcerative
     Dates: start: 2019
  6. MESALAMINE [Concomitant]
     Active Substance: MESALAMINE
     Indication: Proctitis ulcerative
     Route: 054
     Dates: start: 2019

REACTIONS (1)
  - Rectal haemorrhage [Unknown]
